FAERS Safety Report 8264944-5 (Version None)
Quarter: 2012Q2

REPORT INFORMATION
  Report Type: 
  Country: None (occurrence: None)
  Receive Date: 20120403
  Receipt Date: 20120320
  Transmission Date: 20120825
  Serious: Yes (Death, Other)
  Sender: FDA-Public Use
  Company Number: 2011AP003066

PATIENT
  Sex: Female

DRUGS (1)
  1. SERTRALINE HYDROCHLORIDE [Suspect]
     Dosage: 50 MG;QD;TRPL
     Route: 064

REACTIONS (5)
  - NEONATAL ASPIRATION [None]
  - STILLBIRTH [None]
  - PETECHIAE [None]
  - NEONATAL ASPHYXIA [None]
  - MATERNAL DRUGS AFFECTING FOETUS [None]
